FAERS Safety Report 5673350-9 (Version None)
Quarter: 2008Q1

REPORT INFORMATION
  Report Type: 
  Country: None (occurrence: None)
  Receive Date: 20080317
  Receipt Date: 20080227
  Transmission Date: 20080703
  Serious: Yes (Hospitalization)
  Sender: FDA-Public Use
  Company Number: DE200610003194

PATIENT
  Sex: Female
  Weight: 78 kg

DRUGS (5)
  1. GEMCITABINE [Suspect]
     Indication: BREAST CANCER
     Dosage: 1200 MG, INTRAVENOUS
     Route: 042
     Dates: start: 20060821
  2. DOCETAXEL [Suspect]
     Indication: BREAST CANCER
     Dosage: 120 MG, INTRAVENOUS
     Route: 042
     Dates: start: 20060821
  3. PALONOSETRON (PALONOSETRON) [Concomitant]
  4. TAVEGIL (CLEMASTINE) [Concomitant]
  5. CIMETIDIN ^ALIUD PHARMA^ (CIMETIDINE) [Concomitant]

REACTIONS (2)
  - ANAEMIA [None]
  - LEUKOPENIA [None]
